FAERS Safety Report 6348814-5 (Version None)
Quarter: 2009Q3

REPORT INFORMATION
  Report Type: 
  Country: None (occurrence: None)
  Receive Date: 20090911
  Receipt Date: 20090902
  Transmission Date: 20100115
  Serious: No
  Sender: FDA-Public Use
  Company Number: US-B.I. PHARMACEUTICALS,INC./RIDGEFIELD-2009-BP-10315BP

PATIENT
  Age: 75 Year
  Sex: Male

DRUGS (5)
  1. MIRAPEX [Suspect]
     Indication: RESTLESS LEGS SYNDROME
     Dosage: 1.5 MG
     Route: 048
     Dates: start: 20060101
  2. PLAVIX [Concomitant]
     Indication: THROMBOSIS PROPHYLAXIS
     Dates: start: 19990101
  3. VERAPAMIL [Concomitant]
     Indication: HYPERTENSION
     Dates: start: 19990101
  4. ENALAPRIL MALEATE [Concomitant]
     Indication: HYPERTENSION
     Dates: start: 19990101
  5. WATER PILL [Concomitant]
     Indication: HYPERTENSION
     Dates: start: 19990101

REACTIONS (2)
  - INSOMNIA [None]
  - OVERDOSE [None]
